FAERS Safety Report 25418637 (Version 1)
Quarter: 2025Q2

REPORT INFORMATION
  Report Type: Spontaneous
  Country: PL (occurrence: PL)
  Receive Date: 20250610
  Receipt Date: 20250610
  Transmission Date: 20250717
  Serious: Yes (Hospitalization)
  Sender: NOVAST LABORATORIES LTD
  Company Number: PL-NOVAST LABORATORIES INC.-2025NOV000234

PATIENT
  Age: 87 Year
  Sex: Male

DRUGS (2)
  1. ACETAZOLAMIDE [Suspect]
     Active Substance: ACETAZOLAMIDE
     Indication: Cystoid macular oedema
     Route: 048
  2. PRANOPROFEN [Concomitant]
     Active Substance: PRANOPROFEN
     Indication: Cystoid macular oedema
     Route: 061

REACTIONS (2)
  - Choroidal effusion [Recovering/Resolving]
  - Product use in unapproved indication [Unknown]
